FAERS Safety Report 7279985-4 (Version None)
Quarter: 2011Q1

REPORT INFORMATION
  Report Type: 
  Country: None (occurrence: None)
  Receive Date: 20110208
  Receipt Date: 20110203
  Transmission Date: 20110831
  Serious: Yes (Other)
  Sender: FDA-Public Use
  Company Number: US-PFIZER INC-2011023117

PATIENT
  Sex: Female

DRUGS (5)
  1. SEROQUEL [Suspect]
     Dosage: 50 MG, 2X/DAY
     Route: 048
     Dates: start: 20110101
  2. LEXAPRO [Suspect]
     Dosage: 40 MG, 1X/DAY
     Route: 048
     Dates: start: 20110101
  3. MIRALAX [Suspect]
     Indication: BOWEL PREPARATION
     Dosage: 1 CAPFUL AT 1300, 1 CAPFUL AT 1830
     Route: 048
     Dates: start: 20110124
  4. NEURONTIN [Suspect]
     Dosage: 600 MG, 3X/DAY
     Route: 048
     Dates: start: 20110101
  5. TOPAMAX [Suspect]
     Dosage: 200 MG, 1X/DAY
     Route: 048
     Dates: start: 20110101

REACTIONS (2)
  - OEDEMA PERIPHERAL [None]
  - SWELLING FACE [None]
